FAERS Safety Report 6524053-X (Version None)
Quarter: 2009Q4

REPORT INFORMATION
  Report Type: 
  Country: None (occurrence: None)
  Receive Date: 20091231
  Receipt Date: 20091228
  Transmission Date: 20100525
  Serious: Yes (Death, Hospitalization)
  Sender: FDA-Public Use
  Company Number: FR-SANOFI-AVENTIS-2009SA011164

PATIENT
  Age: 63 Year
  Sex: Male

DRUGS (8)
  1. STILNOX [Suspect]
     Indication: DRUG USE FOR UNKNOWN INDICATION
     Route: 048
     Dates: end: 20091222
  2. INFLUENZA VACCINE [Suspect]
     Indication: PROPHYLAXIS
     Dosage: DOSE:1 UNIT(S)
     Route: 030
     Dates: start: 20091222, end: 20091222
  3. CEFTRIAXONE [Suspect]
     Indication: DRUG USE FOR UNKNOWN INDICATION
     Dates: end: 20091222
  4. BACLOFEN [Suspect]
     Indication: DRUG USE FOR UNKNOWN INDICATION
     Dates: end: 20091222
  5. CACIT VITAMINE D3 [Suspect]
     Indication: DRUG USE FOR UNKNOWN INDICATION
     Dates: end: 20091222
  6. FORLAX [Suspect]
     Indication: DRUG USE FOR UNKNOWN INDICATION
     Dates: end: 20091222
  7. ESOMEPRAZOLE SODIUM (NEXIUM) [Suspect]
     Indication: DRUG USE FOR UNKNOWN INDICATION
     Dates: end: 20091222
  8. MIANSERINE [Suspect]
     Indication: DRUG USE FOR UNKNOWN INDICATION
     Dates: end: 20091222

REACTIONS (1)
  - DEATH [None]
